FAERS Safety Report 6093082-5 (Version None)
Quarter: 2009Q1

REPORT INFORMATION
  Report Type: 
  Country: None (occurrence: None)
  Receive Date: 20090224
  Receipt Date: 20090224
  Transmission Date: 20090719
  Serious: Yes (Other)
  Sender: FDA-Public Use
  Company Number: None

PATIENT
  Sex: Female
  Weight: 76.2043 kg

DRUGS (2)
  1. TRILIPIX [Suspect]
     Indication: HYPERLIPIDAEMIA
     Dosage: 1 TABLET DAILY PO
     Route: 048
     Dates: start: 20090127, end: 20090223
  2. TRILISATE 1000MG GENERIC VERSION DISPENSED [Suspect]
     Indication: WRONG DRUG ADMINISTERED
     Dosage: 1 TABLET DAILY PO
     Route: 048
     Dates: start: 20090127, end: 20090223

REACTIONS (3)
  - DRUG DISPENSING ERROR [None]
  - MEDICATION ERROR [None]
  - WRONG DRUG ADMINISTERED [None]
